FAERS Safety Report 7458132-X (Version None)
Quarter: 2011Q2

REPORT INFORMATION
  Report Type: 
  Country: None (occurrence: None)
  Receive Date: 20110504
  Receipt Date: 20110422
  Transmission Date: 20111010
  Serious: Yes (Hospitalization)
  Sender: FDA-Public Use
  Company Number: PHHO2011CH03355

PATIENT
  Sex: Female
  Weight: 123 kg

DRUGS (2)
  1. FTY 720 [Suspect]
     Indication: MULTIPLE SCLEROSIS
     Dosage: 0.5 MG, QD
     Route: 048
     Dates: start: 20101214
  2. MILVANE [Concomitant]
     Dosage: UNK

REACTIONS (8)
  - SENSORY DISTURBANCE [None]
  - DYSARTHRIA [None]
  - PARTIAL SEIZURES [None]
  - LYMPHOPENIA [None]
  - MULTIPLE SCLEROSIS RELAPSE [None]
  - LOSS OF CONTROL OF LEGS [None]
  - VIRAL INFECTION [None]
  - OROPHARYNGEAL PAIN [None]
